FAERS Safety Report 4318949-7 (Version None)
Quarter: 2004Q1

REPORT INFORMATION
  Report Type: 
  Country: None (occurrence: None)
  Receive Date: 20040315
  Receipt Date: 20040305
  Transmission Date: 20041129
  Serious: Yes (Life-Threatening, Hospitalization)
  Sender: FDA-Public Use
  Company Number: 430004M04USA

PATIENT
  Age: 46 Year
  Sex: Female
  Weight: 62.3 kg

DRUGS (4)
  1. NOVANTRONE [Suspect]
     Indication: MULTIPLE SCLEROSIS
     Dosage: 19.4 MG, 1 IN 3 MONTHS,
     Dates: start: 20011205, end: 20040301
  2. OXYBUTYNIN HYDROCHLORIDE [Concomitant]
  3. DOLASETRON MESILATE [Concomitant]
  4. MULTI-VITAMINS [Concomitant]

REACTIONS (5)
  - ASPARTATE AMINOTRANSFERASE INCREASED [None]
  - CEREBRAL ATROPHY [None]
  - DEPRESSION [None]
  - LEUKAEMIA MONOCYTIC [None]
  - PROGRESSIVE MULTIPLE SCLEROSIS [None]
